FAERS Safety Report 8938825 (Version 1)
Quarter: 2012Q4

REPORT INFORMATION
  Report Type: 
  Country: BR (occurrence: BR)
  Receive Date: 20121203
  Receipt Date: 20121203
  Transmission Date: 20130627
  Serious: Yes (Life-Threatening, Hospitalization, Disabling, Other)
  Sender: FDA-Public Use
  Company Number: BR-BAYER-2012-124011

PATIENT
  Age: 27 Year
  Sex: Female

DRUGS (2)
  1. MIRENA [Suspect]
     Dosage: 20 mcg/24hr, CONT
     Route: 015
     Dates: start: 200706, end: 201206
  2. MIRENA [Suspect]
     Dosage: 20 mcg/24hr, CONT
     Route: 015
     Dates: start: 201206

REACTIONS (8)
  - Hypomenorrhoea [None]
  - Amenorrhoea [None]
  - Ectopic pregnancy with intrauterine device [None]
  - Ruptured ectopic pregnancy [None]
  - Pain [None]
  - Vaginal haemorrhage [None]
  - Drug ineffective [None]
  - Blood pressure decreased [None]
